FAERS Safety Report 6358375-2 (Version None)
Quarter: 2009Q3

REPORT INFORMATION
  Report Type: 
  Country: None (occurrence: None)
  Receive Date: 20090916
  Receipt Date: 20090903
  Transmission Date: 20100115
  Serious: Yes (Death)
  Sender: FDA-Public Use
  Company Number: US-PFIZER INC-2009264316

PATIENT
  Age: 21 Year
  Sex: Male

DRUGS (3)
  1. ALPRAZOLAM [Suspect]
  2. DIAZEPAM [Suspect]
  3. OXYCODONE [Suspect]

REACTIONS (1)
  - DRUG TOXICITY [None]
